FAERS Safety Report 23106279 (Version 1)
Quarter: 2023Q4

REPORT INFORMATION
  Report Type: Spontaneous
  Country: CN (occurrence: CN)
  Receive Date: 20231025
  Receipt Date: 20231025
  Transmission Date: 20240109
  Serious: Yes (Other)
  Sender: FDA-Public Use
  Company Number: CN-FreseniusKabi-FK202316681

PATIENT
  Age: 71 Year
  Sex: Female
  Weight: 48 kg

DRUGS (3)
  1. LACTULOSE [Suspect]
     Active Substance: LACTULOSE
     Indication: Dyspepsia
     Dosage: FORM OF ADMINISTRATION: ORAL SOLUTION
     Route: 048
     Dates: start: 20231009, end: 20231009
  2. HERBALS [Suspect]
     Active Substance: HERBALS
     Indication: Dizziness
     Dates: start: 20231009, end: 20231009
  3. SODIUM CHLORIDE [Concomitant]
     Active Substance: SODIUM CHLORIDE
     Indication: Electrolyte imbalance
     Dates: start: 20231009, end: 20231009

REACTIONS (4)
  - Anaphylactoid reaction [Recovering/Resolving]
  - Swelling face [Recovering/Resolving]
  - Dyspnoea [Recovering/Resolving]
  - Lip swelling [Recovering/Resolving]

NARRATIVE: CASE EVENT DATE: 20231009
